FAERS Safety Report 9729565 (Version 1)
Quarter: 2013Q4

REPORT INFORMATION
  Report Type: Spontaneous
  Country: US (occurrence: US)
  Receive Date: 20131204
  Receipt Date: 20131204
  Transmission Date: 20140711
  Serious: No
  Sender: FDA-Public Use
  Company Number: US-ENDO PHARMACEUTICALS INC.-OXAT20130007

PATIENT
  Sex: Male

DRUGS (1)
  1. OXYCODONE/ACETAMINOPHEN TABLETS 5MG/325MG [Suspect]
     Indication: PAIN
     Dosage: 5/325 MG
     Route: 048
     Dates: start: 20130711

REACTIONS (5)
  - Decreased appetite [Not Recovered/Not Resolved]
  - Nausea [Not Recovered/Not Resolved]
  - Hyperhidrosis [Not Recovered/Not Resolved]
  - Dizziness [Not Recovered/Not Resolved]
  - Constipation [Not Recovered/Not Resolved]
